FAERS Safety Report 8076270-8 (Version None)
Quarter: 2012Q1

REPORT INFORMATION
  Report Type: 
  Country: None (occurrence: None)
  Receive Date: 20120127
  Receipt Date: 20120123
  Transmission Date: 20120608
  Serious: Yes (Death, Hospitalization)
  Sender: FDA-Public Use
  Company Number: FR-PFIZER INC-2010158512

PATIENT
  Age: 83 Year
  Sex: Female

DRUGS (6)
  1. CORDARONE [Suspect]
     Dosage: 200 MG, DAILY
     Route: 048
     Dates: start: 20090401, end: 20101031
  2. PULMICORT-100 [Suspect]
     Dosage: 400 UG, 2X/DAY
     Route: 055
  3. PREVISCAN [Suspect]
     Dosage: 20 MG, DAILY
     Route: 048
  4. RAMIPRIL [Suspect]
     Dosage: 1.25 MG, DAILY
     Route: 048
  5. LASIX [Suspect]
     Dosage: 40 MG, DAILY
     Route: 048
     Dates: start: 20090401
  6. LEVOTHYROXINE SODIUM [Suspect]
     Indication: PRODUCT USED FOR UNKNOWN INDICATION
     Dosage: 100 UG, DAILY
     Route: 048

REACTIONS (2)
  - ACUTE RESPIRATORY DISTRESS SYNDROME [None]
  - INTERSTITIAL LUNG DISEASE [None]
